FAERS Safety Report 5141210-8 (Version None)
Quarter: 2006Q4

REPORT INFORMATION
  Report Type: 
  Country: None (occurrence: None)
  Receive Date: 20061026
  Receipt Date: 20061012
  Transmission Date: 20070319
  Serious: Yes (Other)
  Sender: FDA-Public Use
  Company Number: 2006129154

PATIENT
  Sex: Male

DRUGS (3)
  1. CELEBREX [Suspect]
     Dosage: ORAL
     Route: 048
     Dates: start: 20010301, end: 20010701
  2. BEXTRA [Suspect]
     Dosage: ORAL
     Route: 048
     Dates: start: 20030801
  3. VIOXX [Suspect]
     Dosage: ORAL
     Route: 048
     Dates: start: 20010701, end: 20030801

REACTIONS (2)
  - CEREBELLAR INFARCTION [None]
  - CEREBROVASCULAR ACCIDENT [None]
